FAERS Safety Report 14700736 (Version 1)
Quarter: 2018Q1

REPORT INFORMATION
  Report Type: Spontaneous
  Country: JP (occurrence: JP)
  Receive Date: 20180330
  Receipt Date: 20180330
  Transmission Date: 20180509
  Serious: Yes (Hospitalization)
  Sender: FDA-Public Use
  Company Number: JP-EISAI MEDICAL RESEARCH-EC-2018-037532

PATIENT
  Age: 61 Year
  Sex: Female
  Weight: 46 kg

DRUGS (14)
  1. CARERAM [Suspect]
     Active Substance: IGURATIMOD
     Route: 048
     Dates: start: 20180130
  2. RHEUMATREX [Suspect]
     Active Substance: METHOTREXATE SODIUM
     Indication: RHEUMATOID ARTHRITIS
     Route: 048
     Dates: end: 20170929
  3. AMLODIN [Concomitant]
     Active Substance: AMLODIPINE BESYLATE
     Indication: PROPHYLAXIS
     Route: 048
  4. EPADEL [Concomitant]
     Active Substance: ICOSAPENT
     Indication: HYPERLIPIDAEMIA
     Route: 048
  5. CARERAM [Suspect]
     Active Substance: IGURATIMOD
     Dosage: 25 MG AND 50 MG DOSES ALTERNATING?EVERY DAY
     Route: 048
     Dates: start: 20160322, end: 20170928
  6. LENVIMA [Suspect]
     Active Substance: LENVATINIB
     Route: 048
     Dates: start: 20180226
  7. CARERAM [Suspect]
     Active Substance: IGURATIMOD
     Indication: RHEUMATOID ARTHRITIS
     Route: 048
     Dates: start: 20151222, end: 20160321
  8. FOLIAMIN [Concomitant]
     Active Substance: FOLIC ACID
     Indication: PROPHYLAXIS
     Route: 048
     Dates: end: 20170929
  9. HIRUDOID [Concomitant]
     Active Substance: GLYCOSAMINOGLYCANS
     Indication: PROPHYLAXIS
     Dosage: UNKNOWN
     Route: 050
  10. LENVIMA [Suspect]
     Active Substance: LENVATINIB
     Indication: PAPILLARY THYROID CANCER
     Route: 048
     Dates: start: 20150702, end: 20170928
  11. LEVOTHYROXINE SODIUM HYDRATE [Concomitant]
     Active Substance: LEVOTHYROXINE SODIUM
     Indication: THYROID DISORDER
     Dosage: UNKNOWN
     Route: 065
  12. AZILVA [Concomitant]
     Active Substance: AZILSARTAN KAMEDOXOMIL
     Indication: PROPHYLAXIS
     Route: 048
  13. TENORMIN [Concomitant]
     Active Substance: ATENOLOL
     Indication: PROPHYLAXIS
     Route: 048
  14. THYRADIN [Concomitant]
     Active Substance: LEVOTHYROXINE
     Indication: PAPILLARY THYROID CANCER
     Route: 048

REACTIONS (1)
  - Brain abscess [Recovered/Resolved]

NARRATIVE: CASE EVENT DATE: 20170929
